FAERS Safety Report 17759969 (Version 1)
Quarter: 2020Q2

REPORT INFORMATION
  Report Type: Spontaneous
  Country: GD (occurrence: GD)
  Receive Date: 20200508
  Receipt Date: 20200508
  Transmission Date: 20200714
  Serious: Yes (Other)
  Sender: FDA-Public Use
  Company Number: GD-ALVOGEN-2020-ALVOGEN-108348

PATIENT
  Sex: Male

DRUGS (2)
  1. DOXORUBICIN [Suspect]
     Active Substance: DOXORUBICIN
     Indication: MASTECTOMY
  2. CYCLOPHOSPHAMIDE. [Suspect]
     Active Substance: CYCLOPHOSPHAMIDE
     Indication: MASTECTOMY

REACTIONS (3)
  - Cardiac failure congestive [Unknown]
  - Pulmonary embolism [Unknown]
  - Deep vein thrombosis [Unknown]
